FAERS Safety Report 22642205 (Version 1)
Quarter: 2023Q2

REPORT INFORMATION
  Report Type: Other
  Country: None (occurrence: US)
  Receive Date: 20230626
  Receipt Date: 20230626
  Transmission Date: 20230721
  Serious: Yes (Life-Threatening, Hospitalization)
  Sender: FDA-Public Use
  Company Number: US-B.Braun Medical Inc.-2143135

PATIENT
  Age: 39 Year
  Sex: Female

DRUGS (8)
  1. LIDOCAINE HYDROCHLORIDE AND DEXTROSE [Suspect]
     Active Substance: LIDOCAINE HYDROCHLORIDE
     Indication: Ventricular tachycardia
  2. LIDOCAINE HYDROCHLORIDE AND DEXTROSE [Suspect]
     Active Substance: LIDOCAINE HYDROCHLORIDE
     Indication: Ventricular fibrillation
  3. AMIODARONE [Suspect]
     Active Substance: AMIODARONE
  4. MAGNESIUM [Suspect]
     Active Substance: MAGNESIUM
  5. ISOPROTERENOL [Suspect]
     Active Substance: ISOPROTERENOL
  6. MIDAZOLAM [Concomitant]
     Active Substance: MIDAZOLAM
  7. DEXMEDETOMIDINE [Concomitant]
     Active Substance: DEXMEDETOMIDINE
  8. LEVOTHYROXINE [Concomitant]
     Active Substance: LEVOTHYROXINE

REACTIONS (1)
  - Drug ineffective [Unknown]
